FAERS Safety Report 7309813-X (Version None)
Quarter: 2011Q1

REPORT INFORMATION
  Report Type: 
  Country: None (occurrence: None)
  Receive Date: 20110224
  Receipt Date: 20110211
  Transmission Date: 20110831
  Serious: No
  Sender: FDA-Public Use
  Company Number: US-BIOGENIDEC-2011BI006137

PATIENT
  Sex: Female

DRUGS (5)
  1. AVONEX [Concomitant]
     Indication: MULTIPLE SCLEROSIS
     Route: 030
     Dates: start: 20090301
  2. AVONEX [Concomitant]
     Route: 030
     Dates: start: 20031019
  3. AVONEX [Concomitant]
     Route: 030
     Dates: start: 20080408, end: 20090215
  4. TYSABRI [Suspect]
     Indication: MULTIPLE SCLEROSIS
     Route: 042
     Dates: start: 20090320
  5. SOLU-MEDROL [Concomitant]

REACTIONS (1)
  - DRUG HYPERSENSITIVITY [None]
